FAERS Safety Report 4737597-8 (Version None)
Quarter: 2005Q3

REPORT INFORMATION
  Report Type: 
  Country: None (occurrence: None)
  Receive Date: 20050809
  Receipt Date: 20050518
  Transmission Date: 20060218
  Serious: No
  Sender: FDA-Public Use
  Company Number: US-GLAXOSMITHKLINE-A0559139A

PATIENT
  Sex: Female

DRUGS (1)
  1. COMMIT [Suspect]
     Dates: start: 20041028

REACTIONS (1)
  - CHEST DISCOMFORT [None]
